FAERS Safety Report 9307085 (Version 1)
Quarter: 2013Q2

REPORT INFORMATION
  Report Type: Spontaneous
  Country: ZA (occurrence: ZA)
  Receive Date: 20130523
  Receipt Date: 20130523
  Transmission Date: 20140414
  Serious: Yes (Hospitalization)
  Sender: FDA-Public Use
  Company Number: ZA-ROCHE-1228174

PATIENT
  Age: 68 Year
  Sex: Male

DRUGS (1)
  1. MIRCERA [Suspect]
     Indication: NEPHROGENIC ANAEMIA
     Dosage: 200 MCG FROM JAN TO MARCH, 150 MCG IN APRIL
     Route: 065
     Dates: start: 20101201, end: 20130520

REACTIONS (1)
  - Cerebrovascular accident [Recovered/Resolved]
